FAERS Safety Report 7703152-0 (Version None)
Quarter: 2011Q3

REPORT INFORMATION
  Report Type: 
  Country: None (occurrence: None)
  Receive Date: 20110823
  Receipt Date: 20110811
  Transmission Date: 20111222
  Serious: Yes (Hospitalization)
  Sender: FDA-Public Use
  Company Number: ES-PFIZER INC-2011191917

PATIENT
  Age: 85 Year
  Sex: Male

DRUGS (6)
  1. AMIODARONE HCL [Suspect]
     Indication: VENTRICULAR TACHYARRHYTHMIA
     Dosage: DAILY
     Route: 048
     Dates: start: 20110531, end: 20110603
  2. ATORVASTATIN [Concomitant]
     Dosage: UNK
     Dates: start: 20110531
  3. SINTROM [Interacting]
     Indication: ATRIAL FIBRILLATION
     Dosage: UNK
     Route: 048
     Dates: start: 20090803, end: 20110603
  4. ASPIRIN [Interacting]
     Indication: CARDIOVASCULAR EVENT PROPHYLAXIS
     Dosage: UNK
     Route: 048
     Dates: start: 20110531
  5. CARVEDILOL [Concomitant]
     Dosage: UNK
     Dates: start: 20110531, end: 20110603
  6. PLAVIX [Suspect]
     Indication: CARDIOVASCULAR EVENT PROPHYLAXIS
     Dosage: 75 MG, UNK
     Route: 048
     Dates: start: 20110531

REACTIONS (3)
  - COAGULOPATHY [None]
  - ANAEMIA [None]
  - DRUG INTERACTION [None]
